FAERS Safety Report 14105339 (Version 5)
Quarter: 2018Q1

REPORT INFORMATION
  Report Type: Report from Study
  Country: DE (occurrence: DE)
  Receive Date: 20171018
  Receipt Date: 20180321
  Transmission Date: 20180508
  Serious: Yes (Hospitalization)
  Sender: FDA-Public Use
  Company Number: DE-B.I. PHARMACEUTICALS,INC./RIDGEFIELD-2017-BI-055406

PATIENT
  Age: 66 Year
  Sex: Female
  Weight: 54 kg

DRUGS (35)
  1. FENTANYL BETA [Concomitant]
     Indication: PRODUCT USED FOR UNKNOWN INDICATION
     Route: 062
     Dates: start: 20171002, end: 20171004
  2. FENTANYL BETA [Concomitant]
     Route: 062
     Dates: start: 20171005, end: 20171010
  3. PIPERACILLIN EBERTH [Concomitant]
     Indication: PRODUCT USED FOR UNKNOWN INDICATION
     Route: 042
     Dates: start: 20171003, end: 20171009
  4. METAMIZOL [Concomitant]
     Active Substance: METAMIZOLE SODIUM
     Route: 048
     Dates: start: 20171009, end: 20171010
  5. DEXAMETHASON [Concomitant]
     Active Substance: DEXAMETHASONE
     Route: 048
     Dates: start: 20171016, end: 20171016
  6. METOPROLOL RATIOPHARM SUCCINAT [Concomitant]
     Indication: PRODUCT USED FOR UNKNOWN INDICATION
     Route: 048
     Dates: start: 20171014
  7. RINGER LOESUNG [Concomitant]
     Indication: PRODUCT USED FOR UNKNOWN INDICATION
     Route: 042
     Dates: start: 20171003, end: 20171006
  8. MACROGOL [Concomitant]
     Active Substance: POLYETHYLENE GLYCOLS
     Dosage: DOSE- 1 UNKNOWN
     Route: 048
     Dates: start: 20171009, end: 20171010
  9. HYDROMORPHONHYDROCHLORID BETA [Concomitant]
     Indication: PRODUCT USED FOR UNKNOWN INDICATION
     Route: 048
     Dates: start: 20171010
  10. BIBF 1120 [Suspect]
     Active Substance: NINTEDANIB
     Indication: NON-SMALL CELL LUNG CANCER
     Route: 065
     Dates: start: 20170925, end: 20171113
  11. DOCETAXEL. [Suspect]
     Active Substance: DOCETAXEL
     Indication: PRODUCT USED FOR UNKNOWN INDICATION
     Route: 065
     Dates: start: 20170925, end: 20170925
  12. DALTEPARIN [Concomitant]
     Active Substance: DALTEPARIN
     Indication: PRODUCT USED FOR UNKNOWN INDICATION
     Route: 058
     Dates: start: 20171003, end: 20171017
  13. DEXAMETHASON [Concomitant]
     Active Substance: DEXAMETHASONE
     Route: 048
     Dates: start: 20171014, end: 20171015
  14. MCP [Concomitant]
     Active Substance: METOCLOPRAMIDE HYDROCHLORIDE
     Indication: PRODUCT USED FOR UNKNOWN INDICATION
     Route: 048
     Dates: start: 20171113
  15. PANTOPRAZOL [Concomitant]
     Active Substance: PANTOPRAZOLE SODIUM
     Indication: PRODUCT USED FOR UNKNOWN INDICATION
     Route: 048
     Dates: start: 20170608, end: 20171016
  16. RANITIDIN RATIOPHARM [Concomitant]
     Indication: PRODUCT USED FOR UNKNOWN INDICATION
     Route: 042
     Dates: start: 20170925, end: 201711
  17. VOMEX A [Concomitant]
     Active Substance: DIMENHYDRINATE
     Route: 042
     Dates: start: 20171007, end: 20171009
  18. MACROGOL [Concomitant]
     Active Substance: POLYETHYLENE GLYCOLS
     Dosage: DOSE- 1 UNKNOWN
     Route: 048
     Dates: start: 20171011
  19. METAMIZOL [Concomitant]
     Active Substance: METAMIZOLE SODIUM
     Indication: PRODUCT USED FOR UNKNOWN INDICATION
     Route: 048
     Dates: start: 20171006, end: 20171009
  20. TOREM [Concomitant]
     Active Substance: TORSEMIDE
     Indication: PRODUCT USED FOR UNKNOWN INDICATION
     Route: 048
     Dates: start: 20171007
  21. HALOPERIDOL-RATIOPHARM [Concomitant]
     Active Substance: HALOPERIDOL
     Indication: PRODUCT USED FOR UNKNOWN INDICATION
     Dosage: DOSE- 3 UNKNOWN
     Route: 048
     Dates: start: 20171010, end: 20171016
  22. NOVAMINSULFON-RATIOPHARM [Concomitant]
     Active Substance: METAMIZOLE
     Indication: PRODUCT USED FOR UNKNOWN INDICATION
     Route: 048
     Dates: start: 20171012, end: 20171015
  23. VOMEX A [Concomitant]
     Active Substance: DIMENHYDRINATE
     Indication: PRODUCT USED FOR UNKNOWN INDICATION
     Dosage: DOSE- 1 UNKNOWN
     Route: 042
     Dates: start: 20171003, end: 20171006
  24. BIBF 1120 [Suspect]
     Active Substance: NINTEDANIB
     Route: 065
  25. ONDANSETRON B. BRAUN [Concomitant]
     Indication: PRODUCT USED FOR UNKNOWN INDICATION
     Route: 042
     Dates: start: 20171012, end: 20171016
  26. RINGER LACTATE B. BRAUN [Concomitant]
     Indication: PRODUCT USED FOR UNKNOWN INDICATION
     Route: 042
     Dates: start: 20171012, end: 20171016
  27. DOCETAXEL. [Suspect]
     Active Substance: DOCETAXEL
     Route: 065
  28. FENISTIL [Concomitant]
     Active Substance: DIMETHINDENE
     Indication: PRODUCT USED FOR UNKNOWN INDICATION
     Route: 042
     Dates: start: 20170925, end: 201711
  29. METAMIZOL [Concomitant]
     Active Substance: METAMIZOLE SODIUM
     Indication: PRODUCT USED FOR UNKNOWN INDICATION
     Dates: start: 20171002, end: 20171005
  30. MACROGOL [Concomitant]
     Active Substance: POLYETHYLENE GLYCOLS
     Indication: PRODUCT USED FOR UNKNOWN INDICATION
     Dosage: DOSE- 1UNKNOWN
     Route: 048
     Dates: start: 20171004, end: 20171005
  31. METAMIZOL [Concomitant]
     Active Substance: METAMIZOLE SODIUM
     Route: 048
     Dates: start: 20171016
  32. RINGER LACTATO FRESENIUS [Concomitant]
     Indication: PRODUCT USED FOR UNKNOWN INDICATION
     Route: 042
     Dates: start: 20171007, end: 20171009
  33. DEXAMETHASON [Concomitant]
     Active Substance: DEXAMETHASONE
     Indication: PRODUCT USED FOR UNKNOWN INDICATION
     Dates: start: 20171010, end: 20171013
  34. NATRIUMPICOSULFAT [Concomitant]
     Indication: PRODUCT USED FOR UNKNOWN INDICATION
     Dosage: DOSE- 6 UNKNOWN
     Route: 048
     Dates: start: 20171014
  35. PAMIDRONAT GRY [Concomitant]
     Indication: PRODUCT USED FOR UNKNOWN INDICATION
     Route: 042
     Dates: start: 20171016

REACTIONS (6)
  - Dysphagia [Recovered/Resolved]
  - Pneumonia [Recovered/Resolved]
  - Diarrhoea [Recovered/Resolved]
  - Diarrhoea [Recovered/Resolved]
  - Dehydration [Recovered/Resolved]
  - Retching [Recovered/Resolved]

NARRATIVE: CASE EVENT DATE: 201709
